FAERS Safety Report 6748810-X (Version None)
Quarter: 2010Q2

REPORT INFORMATION
  Report Type: 
  Country: None (occurrence: None)
  Receive Date: 20100601
  Receipt Date: 20100524
  Transmission Date: 20101027
  Serious: Yes (Hospitalization)
  Sender: FDA-Public Use
  Company Number: PHHO2010CN07264

PATIENT
  Sex: Male
  Weight: 70 kg

DRUGS (6)
  1. COMPARATOR ENALAPRIL [Suspect]
     Indication: CARDIAC FAILURE
     Dosage: 5 MG, BID
     Route: 048
     Dates: start: 20100423
  2. BLINDED ALISKIREN ALI+TAB+CF [Suspect]
     Dosage: NO TREATMENT
  3. BLINDED ENALAPRIL COMP-ENA+ [Suspect]
     Dosage: NO TREATMENT
  4. BLINDED NO TREATMENT RECEIVED NOMED [Suspect]
     Dosage: NO TREATMENT
  5. SIMVASTATIN [Concomitant]
     Indication: CARDIAC FAILURE
  6. BISOPROLOL [Concomitant]
     Indication: CARDIAC FAILURE

REACTIONS (8)
  - ATRIAL FIBRILLATION [None]
  - CARDIAC DISORDER [None]
  - CEREBRAL ARTERY STENOSIS [None]
  - DISEASE PROGRESSION [None]
  - DIZZINESS [None]
  - DYSPNOEA [None]
  - HEART RATE ABNORMAL [None]
  - PALPITATIONS [None]
